FAERS Safety Report 15833529 (Version 1)
Quarter: 2019Q1

REPORT INFORMATION
  Report Type: Spontaneous
  Country: US (occurrence: US)
  Receive Date: 20190116
  Receipt Date: 20190116
  Transmission Date: 20190417
  Serious: No
  Sender: FDA-Public Use
  Company Number: US-SA-2019SA011201

PATIENT
  Age: 85 Year
  Sex: Female

DRUGS (1)
  1. AVAPRO [Suspect]
     Active Substance: IRBESARTAN
     Dosage: 75 MG-AT 1.5 TABLETS
     Route: 065

REACTIONS (3)
  - Anxiety [Unknown]
  - Hypertension [Unknown]
  - Stomatitis [Unknown]
